FAERS Safety Report 4286313-5 (Version None)
Quarter: 2004Q1

REPORT INFORMATION
  Report Type: 
  Country: None (occurrence: None)
  Receive Date: 20040116
  Receipt Date: 20030618
  Transmission Date: 20041129
  Serious: Yes (Other)
  Sender: FDA-Public Use
  Company Number: 340545

PATIENT
  Age: 26 Year
  Sex: Male

DRUGS (1)
  1. DORMICUM (MIDAZOLAM HYDROCHLORIDE OR MIDAZOLAM MALEATE) 15 MG [Suspect]
     Indication: SEDATION
     Dosage: 15 MG 1 PER ONE DOSE ORAL
     Route: 048
     Dates: start: 20030601, end: 20030601

REACTIONS (2)
  - CONVULSION [None]
  - LOSS OF CONSCIOUSNESS [None]
